FAERS Safety Report 9907070 (Version 2)
Quarter: 2014Q2

REPORT INFORMATION
  Report Type: Other
  Country: US (occurrence: US)
  Receive Date: 20140218
  Receipt Date: 20140630
  Transmission Date: 20141212
  Serious: No
  Sender: FDA-Public Use
  Company Number: US-ACORDA-ACO_101690_2014

PATIENT
  Sex: Female

DRUGS (3)
  1. AMPYRA [Suspect]
     Indication: GAIT DISTURBANCE
     Dosage: 10 MG, BID
     Route: 048
     Dates: start: 2012
  2. KLONOPIN [Suspect]
     Indication: TREMOR
     Dosage: 0.5 MG, 2-3 TIMES A DAY
     Route: 065
     Dates: start: 2012
  3. TECFIDERA [Concomitant]
     Indication: MULTIPLE SCLEROSIS
     Dosage: 240 MG, BID
     Route: 065
     Dates: start: 20140102

REACTIONS (1)
  - Somnolence [Unknown]
